FAERS Safety Report 12259798 (Version 1)
Quarter: 2016Q2

REPORT INFORMATION
  Report Type: Spontaneous
  Country: US (occurrence: US)
  Receive Date: 20160412
  Receipt Date: 20160412
  Transmission Date: 20160815
  Serious: Yes (Other)
  Sender: FDA-Public Use
  Company Number: US-BAYER-2016-066415

PATIENT
  Age: 77 Year
  Sex: Female
  Weight: 68.27 kg

DRUGS (1)
  1. AFRIN NO DRIP EXTRA MOISTURIZING [Suspect]
     Active Substance: OXYMETAZOLINE HYDROCHLORIDE
     Indication: NASAL CONGESTION
     Dosage: 3 DF, QD
     Route: 045

REACTIONS (3)
  - Sinus congestion [None]
  - Intentional product misuse [None]
  - Drug abuser [Not Recovered/Not Resolved]
